FAERS Safety Report 7523107-9 (Version None)
Quarter: 2011Q2

REPORT INFORMATION
  Report Type: 
  Country: None (occurrence: None)
  Receive Date: 20110601
  Receipt Date: 20110601
  Transmission Date: 20111010
  Serious: Yes (Hospitalization)
  Sender: FDA-Public Use
  Company Number: None

PATIENT
  Age: 66 Year
  Sex: Female
  Weight: 104.7 kg

DRUGS (4)
  1. LISINOPRIL [Suspect]
     Indication: CARDIAC FAILURE CONGESTIVE
     Dosage: 40 MG EVERY DAY PO
     Route: 048
     Dates: start: 20091125
  2. LISINOPRIL [Suspect]
     Indication: HYPERTENSION
     Dosage: 40 MG EVERY DAY PO
     Route: 048
     Dates: start: 20091125
  3. SPIRONOLACTONE [Suspect]
     Indication: CARDIAC FAILURE CONGESTIVE
     Dosage: 75 MG EVERY DAY PO
     Route: 048
     Dates: start: 20110405, end: 20110429
  4. SPIRONOLACTONE [Suspect]
     Indication: HYPERTENSION
     Dosage: 75 MG EVERY DAY PO
     Route: 048
     Dates: start: 20110405, end: 20110429

REACTIONS (1)
  - HYPERKALAEMIA [None]
